FAERS Safety Report 7742919-X (Version None)
Quarter: 2011Q3

REPORT INFORMATION
  Report Type: 
  Country: None (occurrence: None)
  Receive Date: 20110819
  Receipt Date: 20110510
  Transmission Date: 20111222
  Serious: No
  Sender: FDA-Public Use
  Company Number: 032590

PATIENT
  Sex: Female

DRUGS (1)
  1. LACOSAMIDE [Suspect]
     Dosage: (400 MG)
     Dates: start: 20100101

REACTIONS (4)
  - COGNITIVE DISORDER [None]
  - HEAD TITUBATION [None]
  - AMNESIA [None]
  - TREMOR [None]
